FAERS Safety Report 9314944 (Version 1)
Quarter: 2013Q2

REPORT INFORMATION
  Report Type: Spontaneous
  Country: FR (occurrence: FR)
  Receive Date: 20130529
  Receipt Date: 20130529
  Transmission Date: 20140414
  Serious: Yes (Death, Hospitalization)
  Sender: FDA-Public Use
  Company Number: FR-JNJFOC-20130515515

PATIENT
  Age: 29 Year
  Sex: Female

DRUGS (2)
  1. REMICADE [Suspect]
     Indication: CROHN^S DISEASE
     Route: 042
     Dates: start: 2008, end: 20130408
  2. HUMIRA [Suspect]
     Indication: CROHN^S DISEASE
     Route: 058
     Dates: start: 20130409, end: 20130422

REACTIONS (8)
  - Varicella [Fatal]
  - Coma [Fatal]
  - Hepatocellular injury [Unknown]
  - Disseminated intravascular coagulation [Unknown]
  - Renal failure [Unknown]
  - Cholestasis [Unknown]
  - Grand mal convulsion [Unknown]
  - Therapeutic response decreased [Unknown]
